FAERS Safety Report 25385379 (Version 1)
Quarter: 2025Q2

REPORT INFORMATION
  Report Type: Spontaneous
  Country: US (occurrence: US)
  Receive Date: 20250602
  Receipt Date: 20250602
  Transmission Date: 20250716
  Serious: Yes (Hospitalization, Other)
  Sender: ABBVIE
  Company Number: US-ABBVIE-6306200

PATIENT
  Age: 33 Year
  Sex: Female

DRUGS (2)
  1. BOTOX [Suspect]
     Active Substance: ONABOTULINUMTOXINA
     Indication: Hyperhidrosis
     Route: 065
     Dates: start: 20250413, end: 20250413
  2. BOTOX [Suspect]
     Active Substance: ONABOTULINUMTOXINA
     Indication: Hyperhidrosis
     Route: 065
     Dates: start: 20250413, end: 20250413

REACTIONS (9)
  - Botulism [Unknown]
  - Asthenia [Recovered/Resolved]
  - Respiratory failure [Unknown]
  - Dizziness [Unknown]
  - Dysphagia [Unknown]
  - Vision blurred [Unknown]
  - Dyspnoea [Unknown]
  - Gait inability [Unknown]
  - Suspected counterfeit product [Unknown]

NARRATIVE: CASE EVENT DATE: 20250416
